FAERS Safety Report 23340596 (Version 1)
Quarter: 2023Q4

REPORT INFORMATION
  Report Type: Spontaneous
  Country: US (occurrence: US)
  Receive Date: 20231227
  Receipt Date: 20231227
  Transmission Date: 20240109
  Serious: No
  Sender: FDA-Public Use
  Company Number: US-002147023-NVSC2023US074961

PATIENT

DRUGS (2)
  1. ROCURONIUM BROMIDE [Suspect]
     Active Substance: ROCURONIUM BROMIDE
     Indication: Product used for unknown indication
     Dosage: 80 MG (VIAL 10 ML MULTIDOSE)
     Route: 065
     Dates: start: 20230310
  2. ROCURONIUM BROMIDE [Suspect]
     Active Substance: ROCURONIUM BROMIDE
     Dosage: 90 MG (VIAL 10 ML MULTIDOSE)
     Route: 065
     Dates: start: 20230310

REACTIONS (2)
  - Vocal cord dysfunction [Unknown]
  - Drug ineffective [Unknown]
